FAERS Safety Report 6121039-4 (Version None)
Quarter: 2009Q1

REPORT INFORMATION
  Report Type: 
  Country: None (occurrence: None)
  Receive Date: 20090317
  Receipt Date: 20090306
  Transmission Date: 20090719
  Serious: Yes (Other)
  Sender: FDA-Public Use
  Company Number: BE-NOVOPROD-285023

PATIENT
  Age: 55 Year
  Sex: Female

DRUGS (3)
  1. MIXTARD HUMAN 70/30 [Suspect]
     Indication: DRUG USE FOR UNKNOWN INDICATION
     Dosage: UNKNOWN
  2. GLUCOPHAGE [Concomitant]
     Dosage: UNKNOWN
  3. REPAGLINIDE [Concomitant]
     Dosage: UNKNOWN

REACTIONS (1)
  - ANGIOEDEMA [None]
